FAERS Safety Report 14204404 (Version 1)
Quarter: 2017Q4

REPORT INFORMATION
  Report Type: Spontaneous
  Country: US (occurrence: US)
  Receive Date: 20171117
  Receipt Date: 20171117
  Transmission Date: 20180321
  Serious: Yes (Life-Threatening, Disabling)
  Sender: FDA-Public Use
  Company Number: None

PATIENT
  Sex: Male
  Weight: 54.9 kg

DRUGS (1)
  1. SPIRIVA [Suspect]
     Active Substance: TIOTROPIUM BROMIDE MONOHYDRATE
     Indication: CHRONIC OBSTRUCTIVE PULMONARY DISEASE
     Dosage: RESPIRATORY (INHALATION)
     Route: 055
     Dates: start: 20170201, end: 20170518

REACTIONS (5)
  - Contracted bladder [None]
  - Dyschezia [None]
  - Urinary retention [None]
  - Muscle contracture [None]
  - Dysuria [None]

NARRATIVE: CASE EVENT DATE: 20170525
